FAERS Safety Report 9422413 (Version 1)
Quarter: 2013Q3

REPORT INFORMATION
  Report Type: Spontaneous
  Country: US (occurrence: US)
  Receive Date: 20130726
  Receipt Date: 20130726
  Transmission Date: 20140515
  Serious: Yes (Other)
  Sender: FDA-Public Use
  Company Number: US-ABBOTT-13P-163-1125286-00

PATIENT
  Age: 38 Year
  Sex: 0
  Weight: 135.2 kg

DRUGS (4)
  1. VICODIN [Suspect]
     Indication: PRODUCT USED FOR UNKNOWN INDICATION
  2. TYVASO [Suspect]
     Indication: PULMONARY ARTERIAL HYPERTENSION
     Dosage: 18-54MCG
     Route: 055
     Dates: start: 20130624
  3. REVATIO [Concomitant]
     Indication: PRODUCT USED FOR UNKNOWN INDICATION
  4. LETAIRIS [Concomitant]
     Indication: PRODUCT USED FOR UNKNOWN INDICATION

REACTIONS (2)
  - Deafness [Unknown]
  - Blood pressure decreased [Unknown]
